FAERS Safety Report 7767433 (Version 4)
Quarter: 2012Q4

REPORT INFORMATION
  Report Type: 
  Country: IE (occurrence: IE)
  Receive Date: 20110120
  Receipt Date: 20120921
  Transmission Date: 20130627
  Serious: Yes (Hospitalization, Other)
  Sender: FDA-Public Use
  Company Number: IE-ABBOTT-10P-229-0686487-00

PATIENT
  Age: 25 Year
  Sex: Female

DRUGS (6)
  1. KALETRA TABLETS [Suspect]
     Indication: HIV INFECTION
     Route: 048
     Dates: start: 20100907, end: 20101022
  2. COMBIVIR [Concomitant]
     Indication: HIV INFECTION
     Route: 048
     Dates: start: 20100907, end: 20101022
  3. TRUVADA [Concomitant]
     Indication: ANTIRETROVIRAL THERAPY
     Dates: start: 20101124
  4. RALTEGRAVIR [Concomitant]
     Indication: ANTIRETROVIRAL THERAPY
     Dates: start: 20101124
  5. TENOFOVIR [Concomitant]
     Indication: PRODUCT USED FOR UNKNOWN INDICATION
  6. MARAVIROC [Concomitant]
     Indication: PRODUCT USED FOR UNKNOWN INDICATION

REACTIONS (9)
  - Nausea [Recovering/Resolving]
  - Aspartate aminotransferase increased [Not Recovered/Not Resolved]
  - Transaminases abnormal [Not Recovered/Not Resolved]
  - Vomiting [Recovering/Resolving]
  - Faeces pale [Recovering/Resolving]
  - Autoimmune hepatitis [Unknown]
  - Hepatitis C [Recovered/Resolved]
  - Immune reconstitution inflammatory syndrome [Recovered/Resolved]
  - Disease complication [Recovered/Resolved]
